FAERS Safety Report 6644238-1 (Version None)
Quarter: 2010Q1

REPORT INFORMATION
  Report Type: 
  Country: None (occurrence: None)
  Receive Date: 20100319
  Receipt Date: 20100319
  Transmission Date: 20100710
  Serious: Yes (Hospitalization)
  Sender: FDA-Public Use
  Company Number: None

PATIENT
  Age: 76 Year
  Sex: Female
  Weight: 68.4 kg

DRUGS (6)
  1. FLEXERIL [Suspect]
     Indication: BACK PAIN
     Dosage: 10MG TID PO
     Route: 048
  2. DARVOCET [Concomitant]
  3. NORVASC [Concomitant]
  4. IBUPROFEN [Concomitant]
  5. HYDROCHLOROTHIAZIDE [Concomitant]
  6. FISH OIL [Concomitant]

REACTIONS (4)
  - CONFUSIONAL STATE [None]
  - DYSARTHRIA [None]
  - HYPOKALAEMIA [None]
  - MENTAL STATUS CHANGES [None]
